FAERS Safety Report 18191113 (Version 3)
Quarter: 2021Q4

REPORT INFORMATION
  Report Type: Spontaneous
  Country: US (occurrence: None)
  Receive Date: 20200825
  Receipt Date: 20211123
  Transmission Date: 20220303
  Serious: Yes (Other)
  Sender: FDA-Public Use
  Company Number: 2020SF04962

PATIENT
  Age: 24282 Day
  Sex: Female
  Weight: 52.6 kg

DRUGS (56)
  1. NEXIUM [Suspect]
     Active Substance: ESOMEPRAZOLE MAGNESIUM
     Indication: Gastrooesophageal reflux disease
     Route: 048
     Dates: start: 200601, end: 201812
  2. NEXIUM [Suspect]
     Active Substance: ESOMEPRAZOLE MAGNESIUM
     Indication: Gastrooesophageal reflux disease
     Route: 048
     Dates: start: 2006, end: 2018
  3. NEXIUM [Suspect]
     Active Substance: ESOMEPRAZOLE MAGNESIUM
     Indication: Gastrooesophageal reflux disease
     Dosage: GENERIC
     Route: 065
     Dates: end: 2017
  4. NEXIUM 24HR [Suspect]
     Active Substance: ESOMEPRAZOLE MAGNESIUM
     Indication: Gastrooesophageal reflux disease
     Route: 048
     Dates: start: 200601, end: 201812
  5. NEXIUM 24HR [Suspect]
     Active Substance: ESOMEPRAZOLE MAGNESIUM
     Indication: Gastrooesophageal reflux disease
     Route: 048
     Dates: start: 2014, end: 2018
  6. PRILOSEC OTC [Suspect]
     Active Substance: OMEPRAZOLE MAGNESIUM
     Indication: Gastrooesophageal reflux disease
     Route: 048
     Dates: start: 200601, end: 201812
  7. PRILOSEC OTC [Suspect]
     Active Substance: OMEPRAZOLE MAGNESIUM
     Indication: Gastrooesophageal reflux disease
     Route: 048
     Dates: start: 2006, end: 2018
  8. OMEPRAZOLE [Suspect]
     Active Substance: OMEPRAZOLE
     Indication: Gastrooesophageal reflux disease
     Dosage: GENERIC
     Route: 065
     Dates: start: 2012
  9. PREVACID [Suspect]
     Active Substance: LANSOPRAZOLE
     Indication: Gastrooesophageal reflux disease
     Route: 065
     Dates: start: 200601, end: 201812
  10. PREVACID [Suspect]
     Active Substance: LANSOPRAZOLE
     Indication: Gastrooesophageal reflux disease
     Route: 065
     Dates: start: 2006, end: 2018
  11. PANTOPRAZOLE [Suspect]
     Active Substance: PANTOPRAZOLE
     Indication: Gastrooesophageal reflux disease
     Route: 065
     Dates: start: 2010, end: 2012
  12. LEVOFLOXACIN [Concomitant]
     Active Substance: LEVOFLOXACIN
  13. VICODIN [Concomitant]
     Active Substance: ACETAMINOPHEN\HYDROCODONE BITARTRATE
  14. ALPRAZOLAM [Concomitant]
     Active Substance: ALPRAZOLAM
  15. MONTELUKAST [Concomitant]
     Active Substance: MONTELUKAST SODIUM
  16. OXYBUTYNIN [Concomitant]
     Active Substance: OXYBUTYNIN
  17. AMOXICILLIN [Concomitant]
     Active Substance: AMOXICILLIN
  18. ROSUVASTATIN [Concomitant]
     Active Substance: ROSUVASTATIN
  19. VALSARTAN [Concomitant]
     Active Substance: VALSARTAN
  20. MIRTAZAPINE [Concomitant]
     Active Substance: MIRTAZAPINE
  21. CLOPIDOGREL [Concomitant]
     Active Substance: CLOPIDOGREL BISULFATE
  22. TRAMADOL [Concomitant]
     Active Substance: TRAMADOL
  23. ZOSTAVAX [Concomitant]
     Active Substance: VARICELLA-ZOSTER VIRUS STRAIN OKA/MERCK LIVE ANTIGEN
  24. CARVEDILOL [Concomitant]
     Active Substance: CARVEDILOL
  25. CIPROFLOXACIN [Concomitant]
     Active Substance: CIPROFLOXACIN
  26. PREVNAR [Concomitant]
     Active Substance: PNEUMOCOCCAL 7-VALENT CONJUGATE VACCINE (DIPHTHERIA CRM197 PROTEIN)
  27. TERCONAZOLE [Concomitant]
     Active Substance: TERCONAZOLE
  28. BETAMETHASONE [Concomitant]
     Active Substance: BETAMETHASONE
  29. TEMAZEPAM [Concomitant]
     Active Substance: TEMAZEPAM
  30. AMOXICILLIN\CLAVULANATE POTASSIUM [Concomitant]
     Active Substance: AMOXICILLIN\CLAVULANATE POTASSIUM
  31. PERPHENAZINE [Concomitant]
     Active Substance: PERPHENAZINE
  32. CITALOPRAM [Concomitant]
     Active Substance: CITALOPRAM HYDROBROMIDE
  33. TIZANIDINE [Concomitant]
     Active Substance: TIZANIDINE
  34. TERCONAZOLE [Concomitant]
     Active Substance: TERCONAZOLE
  35. GABAPENTIN [Concomitant]
     Active Substance: GABAPENTIN
  36. FLUCONAZOLE [Concomitant]
     Active Substance: FLUCONAZOLE
  37. CLOTRIMAZOLE AND BETAMETHASONE DIPROPIONATE [Concomitant]
     Active Substance: BETAMETHASONE\BETAMETHASONE DIPROPIONATE\CLOTRIMAZOLE
  38. CEPHALEXIN [Concomitant]
     Active Substance: CEPHALEXIN
  39. CYANOCOBALAMIN [Concomitant]
     Active Substance: CYANOCOBALAMIN
  40. FLUVIRIN NOS [Concomitant]
     Active Substance: INFLUENZA VIRUS VACCINE
  41. AMLODIPINE [Concomitant]
     Active Substance: AMLODIPINE BESYLATE
  42. RAMIPRIL [Concomitant]
     Active Substance: RAMIPRIL
  43. MELOXICAM [Concomitant]
     Active Substance: MELOXICAM
  44. CLINDAMYCIN [Concomitant]
     Active Substance: CLINDAMYCIN
  45. METRONIDAZOLE [Concomitant]
     Active Substance: METRONIDAZOLE
  46. MEGESTROL [Concomitant]
     Active Substance: MEGESTROL
  47. LISINOPRIL [Concomitant]
     Active Substance: LISINOPRIL
  48. KETOROLAC [Concomitant]
     Active Substance: KETOROLAC TROMETHAMINE
  49. SIMVASTATIN [Concomitant]
     Active Substance: SIMVASTATIN
  50. NITROGLYCERIN [Concomitant]
     Active Substance: NITROGLYCERIN
  51. METHYLPREDNISOLONE [Concomitant]
     Active Substance: METHYLPREDNISOLONE
  52. CYCLOBENZAPRINE [Concomitant]
     Active Substance: CYCLOBENZAPRINE
  53. AMPHETAMINE [Concomitant]
     Active Substance: AMPHETAMINE
  54. ZYRTEC [Concomitant]
     Active Substance: CETIRIZINE HYDROCHLORIDE
  55. ASPIRIN [Concomitant]
     Active Substance: ASPIRIN
  56. DICLOFENAC [Concomitant]
     Active Substance: DICLOFENAC

REACTIONS (1)
  - Chronic kidney disease [Unknown]

NARRATIVE: CASE EVENT DATE: 20160817
